FAERS Safety Report 10032933 (Version 2)
Quarter: 2014Q1

REPORT INFORMATION
  Report Type: Report from Study
  Country: PL (occurrence: PL)
  Receive Date: 20140324
  Receipt Date: 20140324
  Transmission Date: 20141002
  Serious: Yes (Hospitalization)
  Sender: FDA-Public Use
  Company Number: PL-ASTRAZENECA-2014SE06106

PATIENT
  Age: 23705 Day
  Sex: Male

DRUGS (9)
  1. AZD6140 [Suspect]
     Indication: CORONARY ARTERY DISEASE
     Route: 048
     Dates: start: 20110524, end: 20140117
  2. ASA [Concomitant]
     Route: 048
  3. TRIFAS [Concomitant]
     Indication: CORONARY ARTERY DISEASE
     Route: 048
  4. BIOPRAZOL [Concomitant]
     Indication: CORONARY ARTERY DISEASE
     Route: 048
  5. ATORIS [Concomitant]
     Indication: CORONARY ARTERY DISEASE
     Route: 048
  6. KALIPOZ [Concomitant]
     Indication: HYPOKALAEMIA
     Route: 048
  7. INHIBACE [Concomitant]
     Indication: CORONARY ARTERY DISEASE
     Route: 048
  8. INHIBACE [Concomitant]
     Indication: HYPERTENSION
     Route: 048
  9. CONCOR [Concomitant]
     Indication: CORONARY ARTERY DISEASE
     Route: 048

REACTIONS (1)
  - Coronary artery disease [Recovered/Resolved]
